FAERS Safety Report 7048403-3 (Version None)
Quarter: 2010Q4

REPORT INFORMATION
  Report Type: 
  Country: None (occurrence: None)
  Receive Date: 20101014
  Receipt Date: 20101014
  Transmission Date: 20110411
  Serious: Yes (Other)
  Sender: FDA-Public Use
  Company Number: None

PATIENT
  Age: 50 Year
  Sex: Female
  Weight: 52.1637 kg

DRUGS (1)
  1. SEROQUEL XR [Suspect]
     Indication: BIPOLAR DISORDER
     Dosage: 1 TABLET 1/DAY PO
     Route: 048
     Dates: start: 20100210, end: 20100215

REACTIONS (4)
  - BALANCE DISORDER [None]
  - EYE INFECTION [None]
  - HALLUCINATION, VISUAL [None]
  - PARANOIA [None]
